FAERS Safety Report 8766708 (Version 3)
Quarter: 2013Q2

REPORT INFORMATION
  Report Type: Report from Study
  Country: FR (occurrence: FR)
  Receive Date: 20120904
  Receipt Date: 20130508
  Transmission Date: 20140414
  Serious: Yes (Hospitalization)
  Sender: FDA-Public Use
  Company Number: FR-SANOFI-AVENTIS-2012SA040849

PATIENT
  Age: 48 Year
  Sex: Female
  Weight: 57 kg

DRUGS (25)
  1. DOCETAXEL [Suspect]
     Indication: HER-2 POSITIVE BREAST CANCER
     Route: 042
     Dates: start: 20120416, end: 20120618
  2. DOCETAXEL [Suspect]
     Indication: HER-2 POSITIVE BREAST CANCER
     Route: 042
     Dates: start: 20120724
  3. TRASTUZUMAB [Suspect]
     Indication: HER-2 POSITIVE BREAST CANCER
     Route: 042
     Dates: start: 20120416, end: 20120618
  4. TRASTUZUMAB [Suspect]
     Indication: HER-2 POSITIVE BREAST CANCER
     Route: 042
     Dates: start: 20120724
  5. MEDROL [Concomitant]
     Dates: start: 20120416
  6. ALODONT [Concomitant]
     Dates: start: 20120416
  7. SODIUM BICARBONATE [Concomitant]
     Dates: start: 20120416
  8. TRIFLUCAN [Concomitant]
     Dates: start: 20120427
  9. TRIFLUCAN [Concomitant]
     Dates: start: 20120416
  10. DOLIPRANE [Concomitant]
     Dates: start: 201204
  11. DOLIPRANE [Concomitant]
     Dates: start: 20120416
  12. IXPRIM [Concomitant]
     Dates: start: 201204
  13. IXPRIM [Concomitant]
     Dates: start: 20120507
  14. PAROXIL [Concomitant]
     Dates: start: 20120507
  15. PAROXIL [Concomitant]
     Dates: start: 201204
  16. XANAX [Concomitant]
     Dates: start: 201206
  17. SPASFON [Concomitant]
     Dates: start: 201207
  18. TOPALGIC [Concomitant]
     Dates: start: 201207
  19. ATARAX [Concomitant]
     Dates: start: 201207
  20. PRIMPERAN [Concomitant]
     Dates: start: 201207
  21. LOVENOX [Concomitant]
     Dates: start: 201207
  22. ATHYMIL [Concomitant]
     Dates: start: 201207
  23. PARIET [Concomitant]
     Dates: start: 201207
  24. PARACETAMOL [Concomitant]
     Dates: start: 201204
  25. ZOPHREN [Concomitant]
     Dosage: 4 MG, 1 IN THE MORNING AND ONE IN THE EVENING

REACTIONS (3)
  - Febrile bone marrow aplasia [Recovered/Resolved]
  - Vertigo [Not Recovered/Not Resolved]
  - Sepsis syndrome [Recovered/Resolved]
